FAERS Safety Report 22588087 (Version 1)
Quarter: 2023Q2

REPORT INFORMATION
  Report Type: Spontaneous
  Country: US (occurrence: US)
  Receive Date: 20230612
  Receipt Date: 20230612
  Transmission Date: 20230722
  Serious: No
  Sender: FDA-Public Use
  Company Number: US-AMGEN-USASP2023100420

PATIENT
  Sex: Male

DRUGS (3)
  1. REPATHA [Suspect]
     Active Substance: EVOLOCUMAB
     Indication: Blood cholesterol increased
     Dosage: 140 MILLIGRAM PER MILLILITER, EVERY 2 WEEKS
     Route: 058
     Dates: start: 20230420
  2. REPATHA [Suspect]
     Active Substance: EVOLOCUMAB
     Dosage: 140 MILLIGRAM PER MILLILITRE, Q2WK
     Route: 058
  3. METOPROLOL [Concomitant]
     Active Substance: METOPROLOL

REACTIONS (2)
  - Product dose omission issue [Unknown]
  - Fatigue [Unknown]
